FAERS Safety Report 17138438 (Version 1)
Quarter: 2019Q4

REPORT INFORMATION
  Report Type: Spontaneous
  Country: US (occurrence: US)
  Receive Date: 20191211
  Receipt Date: 20191211
  Transmission Date: 20200122
  Serious: No
  Sender: FDA-Public Use
  Company Number: US-UCBSA-2016026035

PATIENT
  Age: 32 Year
  Sex: Male

DRUGS (3)
  1. LEVETIRACETAM. [Suspect]
     Active Substance: LEVETIRACETAM
     Dosage: DOSE INCREASED TO 1000 MG TWICE DAILY
  2. LEVETIRACETAM. [Suspect]
     Active Substance: LEVETIRACETAM
     Indication: PARTIAL SEIZURES
     Dosage: UNKNOWN DOSE
  3. PREDNISOLONE ACETATE. [Concomitant]
     Active Substance: PREDNISOLONE ACETATE
     Indication: PRODUCT USED FOR UNKNOWN INDICATION
     Dosage: 80 MG DAILY DOSE

REACTIONS (7)
  - Acne [Unknown]
  - Irritability [Recovered/Resolved]
  - Hiccups [Recovered/Resolved]
  - Mood swings [Recovered/Resolved]
  - Increased appetite [Unknown]
  - Paraesthesia [Recovered/Resolved]
  - Weight increased [Unknown]
